FAERS Safety Report 16380943 (Version 1)
Quarter: 2019Q2

REPORT INFORMATION
  Report Type: Report from Study
  Country: PL (occurrence: PL)
  Receive Date: 20190602
  Receipt Date: 20190602
  Transmission Date: 20190711
  Serious: Yes (Other)
  Sender: FDA-Public Use
  Company Number: PL-REGENERON PHARMACEUTICALS, INC.-2019-33359

PATIENT

DRUGS (1)
  1. EYLEA [Suspect]
     Active Substance: AFLIBERCEPT
     Indication: NEOVASCULAR AGE-RELATED MACULAR DEGENERATION
     Dosage: 2 MG
     Route: 031
     Dates: start: 20181122

REACTIONS (3)
  - Drug ineffective [Recovering/Resolving]
  - Neovascular age-related macular degeneration [Recovering/Resolving]
  - Blindness [Recovering/Resolving]

NARRATIVE: CASE EVENT DATE: 20190219
